FAERS Safety Report 11004250 (Version 1)
Quarter: 2015Q1

REPORT INFORMATION
  Report Type: Spontaneous
  Country: US (occurrence: None)
  Receive Date: 20150227
  Receipt Date: 20150227
  Transmission Date: 20150721
  Serious: Yes (Other)
  Sender: FDA-Public Use
  Company Number: OMPQ-PR-1401S-0082

PATIENT
  Sex: Female

DRUGS (1)
  1. OMNIPAQUE [Suspect]
     Active Substance: IOHEXOL
     Route: 042
     Dates: start: 20140116, end: 20140116

REACTIONS (1)
  - Urticaria [None]

NARRATIVE: CASE EVENT DATE: 20140116
